FAERS Safety Report 4394244-5 (Version None)
Quarter: 2004Q3

REPORT INFORMATION
  Report Type: 
  Country: None (occurrence: None)
  Receive Date: 20040707
  Receipt Date: 20040707
  Transmission Date: 20050211
  Serious: Yes (Death)
  Sender: FDA-Public Use
  Company Number: None

PATIENT
  Sex: Male

DRUGS (25)
  1. HEPARIN [Suspect]
     Indication: MITRAL VALVE REPLACEMENT
     Dosage: PER PROTOC INTRAVENOUS
     Route: 042
     Dates: start: 20040223, end: 20040307
  2. ALBUTEROL [Concomitant]
  3. AMIODARONE HCL [Concomitant]
  4. ASPIRIN [Concomitant]
  5. DOCUSATE [Concomitant]
  6. FERROUS SULFATE TAB [Concomitant]
  7. FOLIC ACID [Concomitant]
  8. HYDRALAZINE [Concomitant]
  9. INSULIN [Concomitant]
  10. IPRATROPIUM BROMIDE [Concomitant]
  11. ISOSORBIDE DINITRATE [Concomitant]
  12. LACTOBACILUS [Concomitant]
  13. LACTULOSE [Concomitant]
  14. LEVOFLOXACIN [Concomitant]
  15. LINEZOLID [Concomitant]
  16. LORAZEPAM [Concomitant]
  17. METOCLOPRAMIDE [Concomitant]
  18. METOPROLOL [Concomitant]
  19. METRONIDAZOLE [Concomitant]
  20. MULTI-VITAMIN [Concomitant]
  21. OMEPRAZOLE [Concomitant]
  22. OXYCODONE HCL [Concomitant]
  23. RIFAMPIN [Concomitant]
  24. SIMVASTATIN [Concomitant]
  25. THIAMINE [Concomitant]

REACTIONS (1)
  - RECTAL HAEMORRHAGE [None]
